FAERS Safety Report 17586643 (Version 7)
Quarter: 2022Q1

REPORT INFORMATION
  Report Type: Report from Study
  Country: US (occurrence: US)
  Receive Date: 20200326
  Receipt Date: 20220307
  Transmission Date: 20220424
  Serious: Yes (Hospitalization)
  Sender: FDA-Public Use
  Company Number: US-SHIRE-US202010691

PATIENT
  Age: 25 Year
  Sex: Female
  Weight: 82 kg

DRUGS (13)
  1. HUMAN IMMUNOGLOBULIN G [Suspect]
     Active Substance: HUMAN IMMUNOGLOBULIN G
     Indication: Immunodeficiency common variable
     Dosage: 10 GRAM, 1/WEEK
     Route: 058
     Dates: start: 20140123
  2. DIPHENHYDRAMINE [Concomitant]
     Active Substance: DIPHENHYDRAMINE
  3. TREXIMET [Concomitant]
     Active Substance: NAPROXEN SODIUM\SUMATRIPTAN SUCCINATE
  4. EPINEPHRINE [Concomitant]
     Active Substance: EPINEPHRINE
  5. THYROGLOBULIN [Concomitant]
     Active Substance: THYROGLOBULIN
  6. NALTREXONE [Concomitant]
     Active Substance: NALTREXONE
  7. CALCIUM CITRATE [Concomitant]
     Active Substance: CALCIUM CITRATE
  8. MAGNESIUM CITRATE [Concomitant]
     Active Substance: MAGNESIUM CITRATE
  9. ACETAMINOPHEN [Concomitant]
     Active Substance: ACETAMINOPHEN
  10. VITAMIN D3 [Concomitant]
     Active Substance: CHOLECALCIFEROL
  11. LEXAPRO [Concomitant]
     Active Substance: ESCITALOPRAM OXALATE
  12. LIDOCAINE [Concomitant]
     Active Substance: LIDOCAINE
  13. NATURE-THROID [Concomitant]
     Active Substance: THYROID, PORCINE

REACTIONS (6)
  - Wrist fracture [Recovered/Resolved]
  - Road traffic accident [Recovered/Resolved]
  - Tendon rupture [Unknown]
  - Injection site bruising [Unknown]
  - COVID-19 [Unknown]
  - Product dose omission issue [Unknown]

NARRATIVE: CASE EVENT DATE: 20200311
